FAERS Safety Report 16789899 (Version 4)
Quarter: 2022Q3

REPORT INFORMATION
  Report Type: Report from Study
  Country: ES (occurrence: ES)
  Receive Date: 20190910
  Receipt Date: 20220906
  Transmission Date: 20221026
  Serious: Yes (Hospitalization)
  Sender: FDA-Public Use
  Company Number: ES-JNJFOC-20190837258

PATIENT
  Age: 64 Year
  Sex: Male
  Weight: 76.5 kg

DRUGS (10)
  1. ERDAFITINIB [Suspect]
     Active Substance: ERDAFITINIB
     Indication: Transitional cell carcinoma
     Route: 048
     Dates: start: 20190411, end: 20190821
  2. LORMETAZEPAM [Concomitant]
     Active Substance: LORMETAZEPAM
     Indication: Insomnia
  3. ACETAMINOPHEN [Concomitant]
     Active Substance: ACETAMINOPHEN
     Indication: Osteoarthritis
  4. CHOLECALCIFEROL [Concomitant]
     Active Substance: CHOLECALCIFEROL
     Indication: Osteoporosis
  5. OMEPRAZOLE [Concomitant]
     Active Substance: OMEPRAZOLE
     Indication: Gastrointestinal disorder therapy
  6. LEUCOVORIN [Concomitant]
     Active Substance: LEUCOVORIN
     Indication: Anaemia prophylaxis
  7. PREDNISONE [Concomitant]
     Active Substance: PREDNISONE
     Indication: Osteoarthritis
     Dates: start: 2009
  8. CHONDROITIN SULFATE (BOVINE) [Concomitant]
     Active Substance: CHONDROITIN SULFATE (BOVINE)
     Indication: Osteoarthritis
     Dates: start: 20110124
  9. LOPERAMIDE [Concomitant]
     Active Substance: LOPERAMIDE
     Indication: Diarrhoea
     Dates: start: 20190516, end: 20190813
  10. MUPIROCIN [Concomitant]
     Active Substance: MUPIROCIN
     Indication: Nail toxicity
     Dates: start: 20190719

REACTIONS (2)
  - Nail toxicity [Recovered/Resolved]
  - Bacteraemia [Recovered/Resolved]

NARRATIVE: CASE EVENT DATE: 20190828
